FAERS Safety Report 9556287 (Version 1)
Quarter: 2013Q3

REPORT INFORMATION
  Report Type: Spontaneous
  Country: US (occurrence: None)
  Receive Date: 20130815
  Receipt Date: 20130815
  Transmission Date: 20140515
  Serious: Yes (Other)
  Sender: FDA-Public Use
  Company Number: ADR-2013-00288

PATIENT
  Sex: Female

DRUGS (2)
  1. BACLOFEN INTRATHECAL [Suspect]
     Indication: BRAIN INJURY
  2. BACLOFEN INTRATHECAL [Suspect]
     Indication: HEAD INJURY

REACTIONS (4)
  - Drug withdrawal syndrome [None]
  - Somnolence [None]
  - Dysarthria [None]
  - Muscle spasms [None]
